FAERS Safety Report 22086481 (Version 1)
Quarter: 2023Q1

REPORT INFORMATION
  Report Type: Spontaneous
  Country: DE (occurrence: DE)
  Receive Date: 20230312
  Receipt Date: 20230312
  Transmission Date: 20230418
  Serious: Yes (Other)
  Sender: FDA-Public Use
  Company Number: DE-002147023-NVSC2023DE053509

PATIENT
  Sex: Female

DRUGS (1)
  1. XOLAIR [Suspect]
     Active Substance: OMALIZUMAB
     Indication: Urticaria
     Dosage: SOLUTION FOR INJECTION IN PRE-FILLED SYRINGE
     Route: 065
     Dates: start: 2022

REACTIONS (1)
  - Systemic lupus erythematosus [Unknown]
